FAERS Safety Report 9275384 (Version 1)
Quarter: 2013Q2

REPORT INFORMATION
  Report Type: Spontaneous
  Country: US (occurrence: US)
  Receive Date: 20130507
  Receipt Date: 20130507
  Transmission Date: 20140414
  Serious: No
  Sender: FDA-Public Use
  Company Number: US-PFIZER INC-2013141239

PATIENT
  Sex: Female

DRUGS (1)
  1. EFFEXOR XR [Suspect]
     Dosage: UNK
     Dates: start: 2006

REACTIONS (4)
  - Pyrexia [Unknown]
  - Pain [Unknown]
  - Fatigue [Unknown]
  - Night sweats [Unknown]
